FAERS Safety Report 8066641 (Version 10)
Quarter: 2013Q4

REPORT INFORMATION
  Report Type: Spontaneous
  Country: US (occurrence: US)
  Receive Date: 20110803
  Receipt Date: 20131202
  Transmission Date: 20140711
  Serious: Yes (Life-Threatening, Hospitalization, Congenital Anomaly, Other)
  Sender: FDA-Public Use
  Company Number: US-JNJFOC-20110709676

PATIENT
  Sex: Male

DRUGS (3)
  1. TOPAMAX [Suspect]
     Indication: FOETAL EXPOSURE DURING PREGNANCY
     Route: 064
  2. CLONAZEPAM [Suspect]
     Indication: FOETAL EXPOSURE DURING PREGNANCY
     Route: 065
  3. CELEXA [Suspect]
     Indication: FOETAL EXPOSURE DURING PREGNANCY
     Route: 064

REACTIONS (10)
  - Congenital anomaly [Unknown]
  - Cleft lip and palate [Recovered/Resolved]
  - Depression [Unknown]
  - Post-traumatic stress disorder [Unknown]
  - Attention deficit/hyperactivity disorder [Recovering/Resolving]
  - Communication disorder [Unknown]
  - Congenital musculoskeletal anomaly [Unknown]
  - Nasal septum deviation [Unknown]
  - Anxiety [Unknown]
  - Chronic sinusitis [Unknown]
